FAERS Safety Report 16017270 (Version 3)
Quarter: 2019Q2

REPORT INFORMATION
  Report Type: Spontaneous
  Country: JP (occurrence: JP)
  Receive Date: 20190228
  Receipt Date: 20190426
  Transmission Date: 20190711
  Serious: Yes (Life-Threatening, Hospitalization, Other)
  Sender: FDA-Public Use
  Company Number: JP-009507513-1902JPN001439J

PATIENT
  Age: 67 Year
  Sex: Male
  Weight: 44 kg

DRUGS (5)
  1. ALIMTA [Concomitant]
     Active Substance: PEMETREXED DISODIUM
     Indication: MALIGNANT NEOPLASM PROGRESSION
     Dosage: 600 MILLIGRAM, QD
     Route: 041
     Dates: start: 20180801
  2. CARBOPLATIN. [Concomitant]
     Active Substance: CARBOPLATIN
     Indication: MALIGNANT NEOPLASM PROGRESSION
     Dosage: 480 MILLIGRAM, QD
     Route: 041
     Dates: start: 20180801
  3. AVASTIN [Concomitant]
     Active Substance: BEVACIZUMAB
     Indication: MALIGNANT NEOPLASM PROGRESSION
     Dosage: 600 MILLIGRAM, QD
     Route: 041
     Dates: start: 20180801
  4. KEYTRUDA [Suspect]
     Active Substance: PEMBROLIZUMAB
     Indication: NON-SMALL CELL LUNG CANCER
     Dosage: 200 MILLIGRAM, Q3W
     Route: 041
     Dates: start: 20170823, end: 201807
  5. TS-1 [Concomitant]
     Active Substance: GIMERACIL\OTERACIL\TEGAFUR
     Indication: MALIGNANT NEOPLASM PROGRESSION
     Dosage: 50 MILLIGRAM, BID
     Route: 048
     Dates: start: 20190110, end: 20190113

REACTIONS (11)
  - Feeding disorder [Recovering/Resolving]
  - Hypoxia [Unknown]
  - Pneumonia [Unknown]
  - Immune thrombocytopenic purpura [Recovered/Resolved]
  - Vomiting [Recovered/Resolved]
  - Malignant neoplasm progression [Unknown]
  - Skin erosion [Unknown]
  - Diarrhoea [Recovered/Resolved]
  - Stomatitis [Recovering/Resolving]
  - Pemphigoid [Recovering/Resolving]
  - Faeces discoloured [Unknown]

NARRATIVE: CASE EVENT DATE: 20180803
